FAERS Safety Report 7002135-6 (Version None)
Quarter: 2010Q3

REPORT INFORMATION
  Report Type: 
  Country: None (occurrence: None)
  Receive Date: 20100920
  Receipt Date: 20100304
  Transmission Date: 20110219
  Serious: Yes (Other)
  Sender: FDA-Public Use
  Company Number: US-ASTRAZENECA-2007UW02084

PATIENT
  Age: 42 Year
  Sex: Female

DRUGS (19)
  1. SEROQUEL [Suspect]
     Indication: DEPRESSION
     Dosage: 25-500 MG
     Route: 048
     Dates: start: 19981113, end: 20001201
  2. SEROQUEL [Suspect]
     Indication: HALLUCINATION, AUDITORY
     Dosage: 25-500 MG
     Route: 048
     Dates: start: 19981113, end: 20001201
  3. SEROQUEL [Suspect]
     Indication: DELUSIONAL PERCEPTION
     Dosage: 25-500 MG
     Route: 048
     Dates: start: 19981113, end: 20001201
  4. SEROQUEL [Suspect]
     Dosage: 25-100 MG DISPENSED
     Route: 048
     Dates: start: 19990801
  5. SEROQUEL [Suspect]
     Dosage: 25-100 MG DISPENSED
     Route: 048
     Dates: start: 19990801
  6. SEROQUEL [Suspect]
     Dosage: 25-100 MG DISPENSED
     Route: 048
     Dates: start: 19990801
  7. SEROQUEL [Suspect]
     Route: 048
     Dates: start: 19991113
  8. SEROQUEL [Suspect]
     Route: 048
     Dates: start: 19991113
  9. SEROQUEL [Suspect]
     Route: 048
     Dates: start: 19991113
  10. RISPERDAL [Concomitant]
  11. ZYPREXA [Concomitant]
     Dates: start: 20020207
  12. ZYPREXA [Concomitant]
     Dates: start: 20020201, end: 20030201
  13. LORTAB [Concomitant]
     Indication: PAIN
     Dosage: 7.5 MG DISPENSED, FOUR TIMES A DAY
     Dates: start: 19990811
  14. LORTAB [Concomitant]
     Indication: PAIN IN JAW
     Dosage: 7.5 MG DISPENSED, FOUR TIMES A DAY
     Dates: start: 19990811
  15. XANAX [Concomitant]
     Indication: ANXIETY
     Dosage: 1 MG TID, 1 MG TID PRN
     Dates: start: 20010131
  16. GLUCOTROL XL [Concomitant]
     Dates: start: 19990801
  17. PREMARIN [Concomitant]
     Dosage: 1.25 MG
     Dates: start: 20000105
  18. PAXIL [Concomitant]
     Dates: start: 20020207
  19. EFFEXOR XR [Concomitant]

REACTIONS (5)
  - DIABETES MELLITUS [None]
  - DIABETES MELLITUS INADEQUATE CONTROL [None]
  - FIBROMYALGIA [None]
  - OBSESSIVE-COMPULSIVE DISORDER [None]
  - TYPE 2 DIABETES MELLITUS [None]
